FAERS Safety Report 22372203 (Version 1)
Quarter: 2023Q2

REPORT INFORMATION
  Report Type: Spontaneous
  Country: US (occurrence: US)
  Receive Date: 20230526
  Receipt Date: 20230526
  Transmission Date: 20230721
  Serious: Yes (Other)
  Sender: FDA-Public Use
  Company Number: US-UCBSA-2023026532

PATIENT
  Age: 35 Year
  Sex: Female
  Weight: 107.36 kg

DRUGS (1)
  1. CIMZIA [Suspect]
     Active Substance: CERTOLIZUMAB PEGOL
     Indication: Psoriasis
     Dosage: 400 MILLIGRAM, DAY 1, DAY 15, DAY 29
     Route: 058
     Dates: end: 2023

REACTIONS (5)
  - Pseudomonas infection [Recovered/Resolved]
  - Psoriasis [Recovering/Resolving]
  - Alopecia [Recovering/Resolving]
  - Hidradenitis [Recovering/Resolving]
  - Therapy change [Unknown]

NARRATIVE: CASE EVENT DATE: 20230501
